FAERS Safety Report 5877177-4 (Version None)
Quarter: 2008Q3

REPORT INFORMATION
  Report Type: 
  Country: None (occurrence: None)
  Receive Date: 20080910
  Receipt Date: 20080901
  Transmission Date: 20090109
  Serious: Yes (Hospitalization)
  Sender: FDA-Public Use
  Company Number: JP-AMGEN-US301985

PATIENT
  Sex: Male
  Weight: 39.7 kg

DRUGS (14)
  1. PANITUMUMAB [Suspect]
     Indication: SQUAMOUS CELL CARCINOMA
     Route: 042
     Dates: start: 20080724
  2. CISPLATIN [Suspect]
     Route: 042
     Dates: start: 20080724
  3. FLUOROURACIL [Suspect]
     Route: 042
     Dates: start: 20080724
  4. GASTER D [Concomitant]
     Dates: start: 20080802
  5. AZUNOL [Concomitant]
     Route: 065
  6. FENTANYL [Concomitant]
     Route: 062
  7. MORPHINE HCL ELIXIR [Concomitant]
     Route: 048
  8. ACETAMINOPHEN [Concomitant]
     Route: 048
  9. CATLEP [Concomitant]
     Dates: start: 20080803
  10. SODIUM CHLORIDE 0.9% [Concomitant]
     Route: 048
     Dates: start: 20080805
  11. DEXAMETHASONE [Concomitant]
     Route: 062
     Dates: start: 20080805
  12. NUTRITIONAL SUPPLEMENT [Concomitant]
     Route: 048
  13. PROCHLORPERAZINE [Concomitant]
     Route: 048
     Dates: start: 20080806
  14. MAGNESIUM SULFATE [Concomitant]

REACTIONS (1)
  - FEBRILE NEUTROPENIA [None]
